FAERS Safety Report 9320550 (Version 11)
Quarter: 2014Q1

REPORT INFORMATION
  Report Type: Report from Study
  Country: CA (occurrence: CA)
  Receive Date: 20130531
  Receipt Date: 20140124
  Transmission Date: 20141002
  Serious: Yes (Death, Life-Threatening, Hospitalization, Other)
  Sender: FDA-Public Use
  Company Number: CA-ROCHE-1109742

PATIENT
  Age: 59 Year
  Sex: Female
  Weight: 123 kg

DRUGS (16)
  1. ACTEMRA [Suspect]
     Indication: RHEUMATOID ARTHRITIS
     Route: 042
     Dates: start: 20120717, end: 20131204
  2. ACTEMRA [Suspect]
     Indication: SYSTEMIC LUPUS ERYTHEMATOSUS
  3. ARAVA [Concomitant]
     Route: 065
  4. PREDNISONE [Concomitant]
     Route: 065
  5. PLAQUENIL [Concomitant]
     Route: 065
  6. ACTONEL [Concomitant]
     Route: 065
  7. CYCLOBENZAPRINE [Concomitant]
     Route: 065
  8. RAMIPRIL [Concomitant]
     Route: 065
  9. ACETYLSALICYLIC ACID [Concomitant]
     Route: 065
  10. ATENOLOL [Concomitant]
     Route: 065
  11. PRILOSEC [Concomitant]
     Route: 065
  12. CRESTOR [Concomitant]
     Route: 065
  13. VITAMIN B12 [Concomitant]
     Route: 065
  14. VITAMIN B12 [Concomitant]
     Route: 065
  15. AMLODIPINE [Concomitant]
     Route: 065
  16. LEVOCARB [Concomitant]
     Dosage: 100/25
     Route: 065

REACTIONS (28)
  - Death [Fatal]
  - Type 2 diabetes mellitus [Not Recovered/Not Resolved]
  - Myocardial infarction [Recovered/Resolved]
  - Rheumatoid arthritis [Not Recovered/Not Resolved]
  - Pain in extremity [Not Recovered/Not Resolved]
  - Cough [Not Recovered/Not Resolved]
  - Oropharyngeal pain [Not Recovered/Not Resolved]
  - Musculoskeletal pain [Unknown]
  - Arthralgia [Unknown]
  - Diarrhoea [Not Recovered/Not Resolved]
  - Vomiting [Unknown]
  - Local swelling [Not Recovered/Not Resolved]
  - Lower extremity mass [Not Recovered/Not Resolved]
  - Local swelling [Recovered/Resolved]
  - Pyrexia [Recovered/Resolved]
  - Chills [Recovered/Resolved]
  - Hyperhidrosis [Recovered/Resolved]
  - Lethargy [Not Recovered/Not Resolved]
  - Wheezing [Not Recovered/Not Resolved]
  - Bronchitis [Not Recovered/Not Resolved]
  - Oedema peripheral [Recovered/Resolved]
  - Kidney infection [Recovered/Resolved]
  - Pain [Unknown]
  - Dyspnoea [Not Recovered/Not Resolved]
  - Nausea [Not Recovered/Not Resolved]
  - Headache [Not Recovered/Not Resolved]
  - Back pain [Unknown]
  - Off label use [Unknown]
